FAERS Safety Report 9004051 (Version 2)
Quarter: 2013Q1

REPORT INFORMATION
  Report Type: Spontaneous
  Country: FR (occurrence: FR)
  Receive Date: 20130109
  Receipt Date: 20130304
  Transmission Date: 20140127
  Serious: Yes (Other)
  Sender: FDA-Public Use
  Company Number: FR-RANBAXY-2012RR-63944

PATIENT
  Age: 3 Year
  Sex: Female
  Weight: 17 kg

DRUGS (1)
  1. AMOXICILLINE BIOGARAN 250MG/5ML [Suspect]
     Indication: COUGH
     Dosage: UNK
     Route: 048
     Dates: start: 20121219, end: 20121219

REACTIONS (7)
  - Delirium [Recovered/Resolved]
  - Agitation [Recovered/Resolved]
  - Fatigue [Not Recovered/Not Resolved]
  - Wrong drug administered [Unknown]
  - Wrong technique in drug usage process [Unknown]
  - Overdose [Unknown]
  - Medication error [Unknown]
